FAERS Safety Report 7832996-X (Version None)
Quarter: 2011Q4

REPORT INFORMATION
  Report Type: 
  Country: None (occurrence: None)
  Receive Date: 20111024
  Receipt Date: 20111013
  Transmission Date: 20120403
  Serious: Yes (Other)
  Sender: FDA-Public Use
  Company Number: US-JNJFOC-20111008131

PATIENT
  Sex: Male
  Weight: 97.98 kg

DRUGS (3)
  1. CHANTIX [Concomitant]
     Indication: SMOKING CESSATION THERAPY
     Route: 048
     Dates: start: 20110101
  2. DURAGESIC-100 [Suspect]
     Indication: MUSCULOSKELETAL PAIN
     Route: 062
     Dates: start: 20090101, end: 20111007
  3. PERCOCET [Concomitant]
     Indication: PAIN
     Route: 048

REACTIONS (9)
  - HYPERTENSION [None]
  - DIARRHOEA [None]
  - HYPERHIDROSIS [None]
  - BLOOD CHOLESTEROL INCREASED [None]
  - CHILLS [None]
  - FATIGUE [None]
  - MUSCLE SPASMS [None]
  - ASTHENIA [None]
  - TYPE 2 DIABETES MELLITUS [None]
